FAERS Safety Report 21684357 (Version 1)
Quarter: 2022Q4

REPORT INFORMATION
  Report Type: Spontaneous
  Country: US (occurrence: None)
  Receive Date: 20221203
  Receipt Date: 20221203
  Transmission Date: 20230112
  Serious: Yes (Death)
  Sender: FDA-Public Use
  Company Number: None

PATIENT
  Age: 76 Year
  Sex: Female

DRUGS (1)
  1. LENALIDOMIDE [Suspect]
     Active Substance: LENALIDOMIDE
     Dosage: FREQUENCY : DAILY;?
     Route: 048
     Dates: start: 20221007, end: 20221028

REACTIONS (3)
  - Hypercalcaemia [None]
  - Respiratory acidosis [None]
  - Mental status changes [None]

NARRATIVE: CASE EVENT DATE: 20221028
